FAERS Safety Report 5258247-0 (Version None)
Quarter: 2007Q1

REPORT INFORMATION
  Report Type: 
  Country: None (occurrence: None)
  Receive Date: 20070305
  Receipt Date: 20070216
  Transmission Date: 20070707
  Serious: Yes (Death)
  Sender: FDA-Public Use
  Company Number: 237097

PATIENT
  Age: 63 Year
  Sex: Female
  Weight: 52 kg

DRUGS (6)
  1. BEVACIZUMAB (BEVACIZUMAB) PWDR + SOLVENT, INFUSION SOLN, 100MG [Suspect]
     Indication: NON-SMALL CELL LUNG CANCER
     Dosage: UNK, Q3W, INTRAVENOUS
     Route: 042
     Dates: start: 20060728, end: 20060829
  2. CISPLATIN [Suspect]
     Indication: NON-SMALL CELL LUNG CANCER
     Dosage: 80 MG/M2, Q3W, INTRAVENOUS
     Route: 042
     Dates: start: 20060728, end: 20060829
  3. GEMCITABINE [Suspect]
     Indication: NON-SMALL CELL LUNG CANCER
     Dosage: 1250 MG/M2, UNK, INTRAVENOUS
     Route: 042
     Dates: start: 20060728, end: 20060829
  4. PLATELETS [Concomitant]
  5. G-CSF (FILGRASTIM) [Concomitant]
  6. PRBC (BLOOD CELLS, RED) [Concomitant]

REACTIONS (1)
  - DEATH [None]
